FAERS Safety Report 14446762 (Version 2)
Quarter: 2018Q1

REPORT INFORMATION
  Report Type: Spontaneous
  Country: RO (occurrence: RO)
  Receive Date: 20180126
  Receipt Date: 20180207
  Transmission Date: 20180509
  Serious: Yes (Other)
  Sender: FDA-Public Use
  Company Number: PHHY2018RO004079

PATIENT
  Age: 21 Year
  Sex: Male
  Weight: 53 kg

DRUGS (4)
  1. BUDESONIDE. [Concomitant]
     Active Substance: BUDESONIDE
     Indication: CROHN^S DISEASE
     Dosage: 9 MG, QD
     Route: 048
     Dates: start: 201712
  2. COSENTYX [Suspect]
     Active Substance: SECUKINUMAB
     Indication: ANKYLOSING SPONDYLITIS
     Dosage: 150 MG, QMO
     Route: 058
     Dates: start: 20170801
  3. ARCOXIA [Concomitant]
     Active Substance: ETORICOXIB
     Indication: ANKYLOSING SPONDYLITIS
     Dosage: 90 MG, PRN
     Route: 048
     Dates: start: 201712
  4. BUDESONIDE. [Concomitant]
     Active Substance: BUDESONIDE
     Indication: INFLAMMATORY BOWEL DISEASE

REACTIONS (11)
  - Colitis ulcerative [Unknown]
  - Lower gastrointestinal haemorrhage [Unknown]
  - Inappropriate schedule of drug administration [Unknown]
  - Inflammatory bowel disease [Unknown]
  - Haematochezia [Unknown]
  - Pyrexia [Unknown]
  - Mucosal erosion [Unknown]
  - Diarrhoea [Unknown]
  - Anorectal discomfort [Unknown]
  - Mucosal inflammation [Unknown]
  - Ileal ulcer [Unknown]

NARRATIVE: CASE EVENT DATE: 20170801
